FAERS Safety Report 5232454-5 (Version None)
Quarter: 2007Q1

REPORT INFORMATION
  Report Type: 
  Country: None (occurrence: None)
  Receive Date: 20070205
  Receipt Date: 20070124
  Transmission Date: 20070707
  Serious: Yes (Hospitalization)
  Sender: FDA-Public Use
  Company Number: OMPQ-NO-0701S-0048

PATIENT
  Age: 61 Year
  Sex: Male

DRUGS (4)
  1. OMNIPAQUE 140 [Suspect]
     Indication: INTRACRANIAL ANEURYSM
     Dosage: 100 ML, SINGLE DOSE, I.A.; SEE IMAGE
     Route: 013
     Dates: start: 20070115, end: 20070115
  2. OMNIPAQUE 140 [Suspect]
     Indication: INTRACRANIAL ANEURYSM
     Dosage: 100 ML, SINGLE DOSE, I.A.; SEE IMAGE
     Route: 013
     Dates: start: 20070118, end: 20070118
  3. LIPITOR [Concomitant]
  4. WARFARIN SODIUM [Concomitant]

REACTIONS (2)
  - HEPATIC FUNCTION ABNORMAL [None]
  - JAUNDICE [None]
